FAERS Safety Report 18523219 (Version 2)
Quarter: 2023Q4

REPORT INFORMATION
  Report Type: Spontaneous
  Country: DE (occurrence: DE)
  Receive Date: 20201119
  Receipt Date: 20231115
  Transmission Date: 20240110
  Serious: Yes (Disabling, Other)
  Sender: FDA-Public Use
  Company Number: None

PATIENT
  Age: 33 Year
  Sex: Male
  Weight: 83 kg

DRUGS (13)
  1. SEVOFLURANE [Suspect]
     Active Substance: SEVOFLURANE
     Indication: Surgery
     Dosage: 2.3% (PERCENT), PRN (DOSAGE FORM: INHALATION SOLUTION)
     Route: 065
  2. PROPOFOL [Suspect]
     Active Substance: PROPOFOL
     Indication: Tonsillectomy
     Dosage: 300 MG (MILLIGRAM), TOTAL
     Route: 042
     Dates: start: 20190819, end: 20190819
  3. PROPOFOL [Suspect]
     Active Substance: PROPOFOL
     Indication: Anaesthesia
     Dosage: 300 MG (MILLIGRAM), TOTAL
     Route: 065
     Dates: start: 20190820, end: 20190820
  4. MIVACRON [Suspect]
     Active Substance: MIVACURIUM CHLORIDE
     Indication: Surgery
     Dosage: 14 MG (MILLIGRAM), TOTAL
     Route: 065
  5. HALDOL DECANOATE [Suspect]
     Active Substance: HALOPERIDOL DECANOATE
     Indication: Surgery
     Dosage: (JANSSEN DEPOT), AT AN UNSPECIFIED DOSE TOTAL
     Route: 065
  6. DICLOFENAC [Suspect]
     Active Substance: DICLOFENAC
     Indication: Pain
     Dosage: SUPPOSITORIES
     Route: 065
     Dates: start: 20190818, end: 20190902
  7. PIRITRAMIDE [Suspect]
     Active Substance: PIRITRAMIDE
     Indication: Surgery
     Dosage: 7.5 MG (MILLIGRAM), TOTAL
     Route: 065
  8. FENTANYL CITRATE [Suspect]
     Active Substance: FENTANYL CITRATE
     Indication: Surgery
     Dosage: 0.2 MG (MILLIGRAM), TOTAL
     Route: 065
  9. AMIKACIN SULFATE [Suspect]
     Active Substance: AMIKACIN SULFATE
     Indication: Product used for unknown indication
     Dosage: 2500 MG (MILLIGRAM), PRN
     Route: 065
  10. ONDANSETRON [Suspect]
     Active Substance: ONDANSETRON
     Indication: Surgery
     Dosage: 4 MG (MILLIGRAM), PRN
     Route: 065
  11. DEXAMETHASONE [Suspect]
     Active Substance: DEXAMETHASONE
     Indication: Surgery
     Dosage: 8 MG (MILLIGRAM), TOTAL
     Route: 065
  12. DICLOFENAC [Suspect]
     Active Substance: DICLOFENAC
     Indication: Pain
     Dosage: 100 MG (MILLIGRAM) AT AN UNSPECIFIED FREQUENCY
     Route: 065
     Dates: start: 20190818, end: 20190902
  13. METAMIZOLE [Concomitant]
     Active Substance: METAMIZOLE
     Indication: Surgery
     Dosage: 2500 MG (MILLIGRAM), TOTAL
     Route: 065

REACTIONS (22)
  - Impaired work ability [Not Recovered/Not Resolved]
  - General physical health deterioration [Not Recovered/Not Resolved]
  - Cardiovascular disorder [Not Recovered/Not Resolved]
  - Performance status decreased [Not Recovered/Not Resolved]
  - Heart rate increased [Not Recovered/Not Resolved]
  - Dyspnoea [Not Recovered/Not Resolved]
  - Speech disorder [Not Recovered/Not Resolved]
  - Chest pain [Not Recovered/Not Resolved]
  - Oropharyngeal pain [Not Recovered/Not Resolved]
  - Flatulence [Not Recovered/Not Resolved]
  - Visual impairment [Not Recovered/Not Resolved]
  - Weight bearing difficulty [Not Recovered/Not Resolved]
  - Heart rate increased [Not Recovered/Not Resolved]
  - Vision blurred [Not Recovered/Not Resolved]
  - Oropharyngeal discomfort [Not Recovered/Not Resolved]
  - Dyspnoea [Not Recovered/Not Resolved]
  - Somnolence [Not Recovered/Not Resolved]
  - Hyperventilation [Not Recovered/Not Resolved]
  - Blood pressure measurement [Not Recovered/Not Resolved]
  - Chest discomfort [Not Recovered/Not Resolved]
  - Dizziness [Not Recovered/Not Resolved]
  - Asthenia [Not Recovered/Not Resolved]

NARRATIVE: CASE EVENT DATE: 20190818
